FAERS Safety Report 26062576 (Version 1)
Quarter: 2025Q4

REPORT INFORMATION
  Report Type: Spontaneous
  Country: US (occurrence: None)
  Receive Date: 20251118
  Receipt Date: 20251118
  Transmission Date: 20260117
  Serious: No
  Sender: FDA-CTU
  Company Number: None

PATIENT
  Sex: Male

DRUGS (2)
  1. ICATIBANT ACETATE [Suspect]
     Active Substance: ICATIBANT ACETATE
     Indication: Complement deficiency disease
     Dosage: FREQUENCY : AS NEEDED;?
     Route: 058
     Dates: start: 20170908
  2. NEEDLE 25G X 5/8 HYPO [Concomitant]

REACTIONS (3)
  - Weight decreased [None]
  - Gastrointestinal disorder [None]
  - Arthropathy [None]
